FAERS Safety Report 4309266-X (Version None)
Quarter: 2004Q1

REPORT INFORMATION
  Report Type: 
  Country: None (occurrence: None)
  Receive Date: 20040227
  Receipt Date: 20040213
  Transmission Date: 20041129
  Serious: No
  Sender: FDA-Public Use
  Company Number: 2004-BP-00684NB

PATIENT
  Age: 73 Year
  Sex: Female

DRUGS (3)
  1. MICARDIS [Suspect]
     Indication: HYPERTENSION
     Dosage: 40 MG (NR), PO
     Route: 048
     Dates: start: 20031224, end: 20040122
  2. NORVASC [Suspect]
  3. TAGAMET (TA) [Concomitant]

REACTIONS (2)
  - CHOLELITHIASIS [None]
  - HEPATIC FUNCTION ABNORMAL [None]
